FAERS Safety Report 6379120-0 (Version None)
Quarter: 2009Q3

REPORT INFORMATION
  Report Type: 
  Country: None (occurrence: None)
  Receive Date: 20090923
  Receipt Date: 20090923
  Transmission Date: 20100115
  Serious: Yes (Life-Threatening, Hospitalization)
  Sender: FDA-Public Use
  Company Number: None

PATIENT
  Age: 86 Year
  Sex: Female

DRUGS (8)
  1. BACTRIM [Suspect]
     Indication: URINARY TRACT INFECTION
     Dosage: 1 DS BID PO
     Route: 048
  2. ASPIRIN [Concomitant]
  3. FUROSEMIDE [Concomitant]
  4. FLUOXETINE [Concomitant]
  5. LISINOPRIL [Concomitant]
  6. MEMANTINE HCL [Concomitant]
  7. LANSOPRAZOLE [Concomitant]
  8. MIRTAZAPINE [Concomitant]

REACTIONS (3)
  - BLOOD CREATININE INCREASED [None]
  - BLOOD POTASSIUM INCREASED [None]
  - CHEST PAIN [None]
